FAERS Safety Report 15753693 (Version 1)
Quarter: 2018Q4

REPORT INFORMATION
  Report Type: Spontaneous
  Country: GB (occurrence: GB)
  Receive Date: 20181222
  Receipt Date: 20181222
  Transmission Date: 20190205
  Serious: Yes (Other)
  Sender: FDA-Public Use
  Company Number: GB-ACCORD-096658

PATIENT
  Age: 79 Year
  Sex: Female
  Weight: 78 kg

DRUGS (13)
  1. LISINOPRIL. [Concomitant]
     Active Substance: LISINOPRIL
     Dates: start: 20180129
  2. CLENIL MODULITE [Concomitant]
     Active Substance: BECLOMETHASONE DIPROPIONATE
     Dates: start: 20170411
  3. PREDNISOLONE. [Concomitant]
     Active Substance: PREDNISOLONE
     Dosage: AS DIRECTED
  4. GAVISCON ADVANCE [Concomitant]
     Active Substance: POTASSIUM BICARBONATE\SODIUM ALGINATE
     Dosage: 5ML OR 10ML
     Dates: start: 20170413, end: 20171220
  5. AMLODIPINE [Suspect]
     Active Substance: AMLODIPINE BESYLATE
     Indication: JOINT SWELLING
  6. ALENDRONATE SODIUM/ALENDRONIC ACID [Concomitant]
     Dosage: ON AN EMPTY STOMACH, WITH ...
     Dates: start: 20160204
  7. LANSOPRAZOLE. [Concomitant]
     Active Substance: LANSOPRAZOLE
     Dates: start: 20170515
  8. ISPAGHULA EXTRACT\PSYLLIUM [Concomitant]
     Active Substance: HERBALS\PLANTAGO OVATA SEED\PLANTAGO SEED
     Dates: start: 20170313
  9. ACIDEX [Concomitant]
     Active Substance: CALCIUM CARBONATE\SODIUM ALGINATE\SODIUM BICARBONATE
     Dates: start: 20171220
  10. ADCAL [Concomitant]
     Active Substance: CALCIUM CARBONATE
     Dates: start: 20170515
  11. SALBUTAMOL [Concomitant]
     Active Substance: ALBUTEROL
     Route: 055
     Dates: start: 20150526
  12. AMOXICILLIN. [Concomitant]
     Active Substance: AMOXICILLIN
     Dates: start: 20180104, end: 20180109
  13. PARACETAMOL [Concomitant]
     Active Substance: ACETAMINOPHEN
     Dosage: TAKE TWO TABLETS UP TO FOUR TIMES DAILY AS NECE...
     Dates: start: 20150817

REACTIONS (4)
  - Rash [Recovered/Resolved]
  - Off label use [Unknown]
  - Condition aggravated [Unknown]
  - Joint swelling [Unknown]

NARRATIVE: CASE EVENT DATE: 20180202
